FAERS Safety Report 6023490-X (Version None)
Quarter: 2008Q4

REPORT INFORMATION
  Report Type: 
  Country: None (occurrence: None)
  Receive Date: 20081230
  Receipt Date: 20081219
  Transmission Date: 20090506
  Serious: Yes (Life-Threatening, Hospitalization)
  Sender: FDA-Public Use
  Company Number: FR-MERCK-0804FRA00128

PATIENT
  Age: 65 Year
  Sex: Female

DRUGS (4)
  1. VYTORIN [Suspect]
     Indication: DYSLIPIDAEMIA
     Route: 048
     Dates: start: 20071201, end: 20080225
  2. FLUVASTATIN SODIUM [Suspect]
     Indication: DYSLIPIDAEMIA
     Route: 048
     Dates: start: 20030301, end: 20071201
  3. DICLOFENAC SODIUM [Concomitant]
     Route: 048
     Dates: start: 20080220
  4. NAPROXEN [Concomitant]
     Route: 048
     Dates: start: 20080222

REACTIONS (2)
  - RENAL FAILURE ACUTE [None]
  - RHABDOMYOLYSIS [None]
